FAERS Safety Report 8224829-7 (Version None)
Quarter: 2012Q1

REPORT INFORMATION
  Report Type: 
  Country: None (occurrence: None)
  Receive Date: 20120321
  Receipt Date: 20120312
  Transmission Date: 20120608
  Serious: Yes (Other)
  Sender: FDA-Public Use
  Company Number: US-ROCHE-1022848

PATIENT
  Sex: Female
  Weight: 95.34 kg

DRUGS (2)
  1. ACCUTANE [Suspect]
     Dates: start: 20040101, end: 20040801
  2. ACCUTANE [Suspect]
     Indication: ACNE
     Dates: start: 19940101, end: 19960101

REACTIONS (4)
  - IRRITABLE BOWEL SYNDROME [None]
  - DEPRESSION [None]
  - SUICIDAL IDEATION [None]
  - EMOTIONAL DISTRESS [None]
